FAERS Safety Report 8417238-9 (Version None)
Quarter: 2012Q2

REPORT INFORMATION
  Report Type: 
  Country: None (occurrence: None)
  Receive Date: 20120606
  Receipt Date: 20120521
  Transmission Date: 20120825
  Serious: No
  Sender: FDA-Public Use
  Company Number: US-ASTRAZENECA-2011SE53011

PATIENT
  Age: 56 Year
  Sex: Female

DRUGS (4)
  1. ZOMIG [Suspect]
     Route: 048
  2. ANTIDEPRESSANTS [Concomitant]
     Indication: ANTIDEPRESSANT THERAPY
  3. ZOMIG [Suspect]
     Route: 048
  4. TOPIRAMATE [Concomitant]
     Indication: ANTIDEPRESSANT THERAPY

REACTIONS (3)
  - HEADACHE [None]
  - DRUG EFFECT DECREASED [None]
  - DRUG PRESCRIBING ERROR [None]
